FAERS Safety Report 12326699 (Version 1)
Quarter: 2016Q2

REPORT INFORMATION
  Report Type: Spontaneous
  Country: US (occurrence: None)
  Receive Date: 20160502
  Receipt Date: 20160502
  Transmission Date: 20160815
  Serious: Yes (Other)
  Sender: FDA-Public Use
  Company Number: None

PATIENT
  Age: 60 Year
  Sex: Female
  Weight: 64.41 kg

DRUGS (13)
  1. IC SULFAMETHOXAZOLE AUROBINDO PHARM [Suspect]
     Active Substance: SULFAMETHOXAZOLE
     Indication: LYME DISEASE
     Route: 048
     Dates: start: 20160409, end: 20160429
  2. VITAMIN D3 [Concomitant]
     Active Substance: CHOLECALCIFEROL
  3. PLAQUENIL [Concomitant]
     Active Substance: HYDROXYCHLOROQUINE SULFATE
  4. IC SULFAMETHOXAZOLE AUROBINDO PHARM [Suspect]
     Active Substance: SULFAMETHOXAZOLE
     Indication: CAT SCRATCH DISEASE
     Route: 048
     Dates: start: 20160409, end: 20160429
  5. NATTOKINASE [Concomitant]
     Active Substance: NATTOKINASE
  6. IC CLARITHROMYCIN [Concomitant]
  7. ARMOUR THYROID [Concomitant]
     Active Substance: THYROID, PORCINE
  8. MILK THISTLE [Concomitant]
     Active Substance: MILK THISTLE
  9. VITAMIN B12 [Concomitant]
     Active Substance: CYANOCOBALAMIN
  10. BACTRIM [Suspect]
     Active Substance: SULFAMETHOXAZOLE\TRIMETHOPRIM
  11. NYSTATIN. [Concomitant]
     Active Substance: NYSTATIN
  12. WELLBUTRIN (GENERIC BUPROPION) [Concomitant]
  13. PROBIOTICS [Concomitant]
     Active Substance: PROBIOTICS NOS

REACTIONS (6)
  - Oral discomfort [None]
  - Gingival pain [None]
  - Pharyngeal erythema [None]
  - Lip dry [None]
  - Swollen tongue [None]
  - Throat irritation [None]

NARRATIVE: CASE EVENT DATE: 20160425
